FAERS Safety Report 6426113-0 (Version None)
Quarter: 2009Q4

REPORT INFORMATION
  Report Type: 
  Country: None (occurrence: None)
  Receive Date: 20091104
  Receipt Date: 20091103
  Transmission Date: 20100525
  Serious: Yes (Hospitalization)
  Sender: FDA-Public Use
  Company Number: IT-WYE-G04172009

PATIENT
  Sex: Female

DRUGS (4)
  1. EFFEXOR [Suspect]
     Indication: BIPOLAR DISORDER
     Route: 048
     Dates: start: 20070713, end: 20090714
  2. FLUNOX [Suspect]
     Indication: BIPOLAR DISORDER
     Route: 048
     Dates: start: 20070713, end: 20090714
  3. FENOFIBRATE [Concomitant]
  4. CARBOLITHIUM [Suspect]
     Indication: BIPOLAR DISORDER
     Route: 048
     Dates: start: 20070713, end: 20090714

REACTIONS (5)
  - APRAXIA [None]
  - ATAXIA [None]
  - DISORIENTATION [None]
  - MUSCLE RIGIDITY [None]
  - SOPOR [None]
